FAERS Safety Report 8625675-2 (Version None)
Quarter: 2012Q3

REPORT INFORMATION
  Report Type: 
  Country: None (occurrence: None)
  Receive Date: 20120827
  Receipt Date: 20120823
  Transmission Date: 20120928
  Serious: Yes (Life-Threatening, Hospitalization, Other)
  Sender: FDA-Public Use
  Company Number: MX-AMGEN-MEXCT2012049009

PATIENT
  Age: 76 Year
  Sex: Female

DRUGS (1)
  1. DENOSUMAB [Suspect]
     Indication: OSTEOPOROSIS POSTMENOPAUSAL
     Dosage: 60 MG, Q6MO
     Route: 058
     Dates: start: 20050212

REACTIONS (4)
  - SPLENOMEGALY [None]
  - THROMBOCYTOPENIA [None]
  - ANAEMIA [None]
  - LEUKAEMIA [None]
